FAERS Safety Report 8882501 (Version 3)
Quarter: 2013Q1

REPORT INFORMATION
  Report Type: Spontaneous
  Country: US (occurrence: US)
  Receive Date: 20121103
  Receipt Date: 20130219
  Transmission Date: 20140127
  Serious: Yes (Other)
  Sender: FDA-Public Use
  Company Number: US-US-EMD SERONO, INC.-7162986

PATIENT
  Age: 59 None
  Sex: Female
  Weight: 89 kg

DRUGS (3)
  1. REBIF [Suspect]
     Indication: MULTIPLE SCLEROSIS
     Dates: start: 200904, end: 2011
  2. REBIF [Suspect]
     Route: 058
     Dates: start: 20120808
  3. COPAXONE [Concomitant]
     Indication: PRODUCT USED FOR UNKNOWN INDICATION
     Dates: start: 20110301, end: 20120726

REACTIONS (12)
  - Myelitis transverse [Not Recovered/Not Resolved]
  - Benign anorectal neoplasm [Recovered/Resolved]
  - Weight decreased [Unknown]
  - Abdominal adhesions [Not Recovered/Not Resolved]
  - Altered visual depth perception [Not Recovered/Not Resolved]
  - Fall [Unknown]
  - Dyskinesia [Unknown]
  - Muscle tightness [Unknown]
  - Hyperhidrosis [Recovering/Resolving]
  - Feeling cold [Unknown]
  - Pain [Recovering/Resolving]
  - Injection site pain [Unknown]
